FAERS Safety Report 5950250-8 (Version None)
Quarter: 2008Q4

REPORT INFORMATION
  Report Type: 
  Country: None (occurrence: None)
  Receive Date: 20081112
  Receipt Date: 20081029
  Transmission Date: 20090506
  Serious: Yes (Other)
  Sender: FDA-Public Use
  Company Number: JP-TEVA-180224ISR

PATIENT
  Age: 12 Year
  Sex: Male

DRUGS (6)
  1. CISPLATIN [Suspect]
     Indication: RHABDOMYOSARCOMA
     Dates: start: 19960601
  2. DOXORUBICIN HYDROCHLORIDE [Suspect]
     Indication: RHABDOMYOSARCOMA
     Dates: start: 19960601
  3. ETOPOSIDE [Suspect]
     Indication: RHABDOMYOSARCOMA
     Dates: start: 19960601
  4. VINCRISTINE SULFATE [Suspect]
     Indication: RHABDOMYOSARCOMA
     Dates: start: 19960601
  5. CYCLOPHOSPHAMIDE [Suspect]
     Indication: RHABDOMYOSARCOMA
     Dates: start: 19960601
  6. DACTINOMYCIN [Suspect]
     Indication: RHABDOMYOSARCOMA
     Dosage: 350 MCG/KG
     Dates: start: 19960601

REACTIONS (1)
  - BONE SARCOMA [None]
